FAERS Safety Report 21574326 (Version 1)
Quarter: 2022Q4

REPORT INFORMATION
  Report Type: Spontaneous
  Country: US (occurrence: US)
  Receive Date: 20221109
  Receipt Date: 20221109
  Transmission Date: 20230112
  Serious: No
  Sender: FDA-Public Use
  Company Number: US-BAUSCHBL-2022BNL001842

PATIENT
  Age: 33 Year
  Sex: Female
  Weight: 63.560 kg

DRUGS (6)
  1. ZYLET [Suspect]
     Active Substance: LOTEPREDNOL ETABONATE\TOBRAMYCIN
     Indication: Inflammation
     Dosage: FOUR TIMES A DAY
     Route: 047
     Dates: start: 20221020, end: 20221027
  2. ZYLET [Suspect]
     Active Substance: LOTEPREDNOL ETABONATE\TOBRAMYCIN
     Dosage: THREE TIMES A DAY
     Route: 047
     Dates: start: 20221028, end: 20221101
  3. ZYLET [Suspect]
     Active Substance: LOTEPREDNOL ETABONATE\TOBRAMYCIN
     Dosage: FOUR TIMES A DAY
     Route: 047
     Dates: start: 20221102, end: 20221103
  4. ZYLET [Suspect]
     Active Substance: LOTEPREDNOL ETABONATE\TOBRAMYCIN
     Dosage: THREE TIMES A DAY
     Route: 047
     Dates: start: 20221104, end: 20221105
  5. ZYLET [Suspect]
     Active Substance: LOTEPREDNOL ETABONATE\TOBRAMYCIN
     Dosage: TWO TIMES A DAY
     Route: 047
     Dates: start: 20221106
  6. CEQUA [Concomitant]
     Active Substance: CYCLOSPORINE
     Indication: Product used for unknown indication

REACTIONS (1)
  - Vision blurred [Recovering/Resolving]

NARRATIVE: CASE EVENT DATE: 20221107
